FAERS Safety Report 4523588-9 (Version None)
Quarter: 2004Q4

REPORT INFORMATION
  Report Type: 
  Country: None (occurrence: None)
  Receive Date: 20041208
  Receipt Date: 20041202
  Transmission Date: 20050328
  Serious: Yes (Hospitalization, Disabling)
  Sender: FDA-Public Use
  Company Number: OMPQ-PR-0412S-1405

PATIENT
  Age: 56 Year
  Sex: Female

DRUGS (2)
  1. OMNIPAQUE 140 [Suspect]
     Indication: MENTAL STATUS CHANGES
     Dosage: 70 ML SINGLE DOSE IV
     Route: 042
     Dates: start: 20041103, end: 20041103
  2. PHENERGAN [Suspect]
     Dosage: 12 MG SINGLE DOSE IV
     Route: 042
     Dates: start: 20041103, end: 20041103

REACTIONS (7)
  - ARM AMPUTATION [None]
  - EXTREMITY NECROSIS [None]
  - FINGER AMPUTATION [None]
  - INFUSION SITE PAIN [None]
  - INJECTION SITE DISCOLOURATION [None]
  - INJECTION SITE HAEMORRHAGE [None]
  - RADIAL PULSE ABNORMAL [None]
